FAERS Safety Report 7495462-X (Version None)
Quarter: 2011Q2

REPORT INFORMATION
  Report Type: 
  Country: None (occurrence: None)
  Receive Date: 20110523
  Receipt Date: 20110512
  Transmission Date: 20111010
  Serious: Yes (Death, Other)
  Sender: FDA-Public Use
  Company Number: US-ROXANE LABORATORIES, INC.-2011-DE-03027GD

PATIENT
  Age: 55 Year
  Sex: Female

DRUGS (2)
  1. ORAMORPH SR [Suspect]
  2. PROPOXYPHENE HYDROCHLORIDE [Suspect]

REACTIONS (3)
  - ABNORMAL BEHAVIOUR [None]
  - TOXICITY TO VARIOUS AGENTS [None]
  - UNRESPONSIVE TO STIMULI [None]
